FAERS Safety Report 16863635 (Version 1)
Quarter: 2019Q3

REPORT INFORMATION
  Report Type: Spontaneous
  Country: IT (occurrence: IT)
  Receive Date: 20190927
  Receipt Date: 20190927
  Transmission Date: 20191005
  Serious: Yes (Other)
  Sender: FDA-Public Use
  Company Number: IT-SHIRE-IT201931600

PATIENT

DRUGS (2)
  1. ADVATE [Suspect]
     Active Substance: ANTIHEMOPHILIC FACTOR, HUMAN RECOMBINANT
     Dosage: 51.9 INTERNATIONAL UNIT/KILOGRAM, EVERY 72 HOURS
     Route: 065
  2. ADVATE [Suspect]
     Active Substance: ANTIHEMOPHILIC FACTOR, HUMAN RECOMBINANT
     Indication: FACTOR VIII DEFICIENCY
     Dosage: 45.5 INTERNATIONAL UNIT/KILOGRAM, 1X/DAY:QD
     Route: 065

REACTIONS (2)
  - Haematoma [Unknown]
  - Haemorrhage [Recovering/Resolving]
